FAERS Safety Report 9163297 (Version 1)
Quarter: 2013Q1

REPORT INFORMATION
  Report Type: Report from Study
  Country: AU (occurrence: AU)
  Receive Date: 20130314
  Receipt Date: 20130314
  Transmission Date: 20140127
  Serious: Yes (Hospitalization)
  Sender: FDA-Public Use
  Company Number: AU-EISAI INC-E3810-06306-SOL-AU

PATIENT
  Sex: Female

DRUGS (10)
  1. PARIET (RABEPRAZOLE) [Suspect]
     Dosage: UNKNOWN
     Route: 048
  2. STELARA [Suspect]
     Route: 065
     Dates: start: 20120223, end: 20120223
  3. STELARA [Suspect]
     Route: 065
     Dates: start: 20120614, end: 20120614
  4. STELARA [Suspect]
     Route: 065
     Dates: start: 20120905, end: 20120905
  5. STELARA [Suspect]
     Route: 065
     Dates: start: 20121130, end: 20121130
  6. VERAPAMIL [Concomitant]
  7. ASPIRIN [Concomitant]
  8. LASIX [Concomitant]
  9. SLOWK [Concomitant]
  10. ZOCOR [Concomitant]

REACTIONS (1)
  - Pneumonia [Recovering/Resolving]
